FAERS Safety Report 14819410 (Version 1)
Quarter: 2018Q2

REPORT INFORMATION
  Report Type: Spontaneous
  Country: US (occurrence: US)
  Receive Date: 20180402
  Receipt Date: 20180402
  Transmission Date: 20180711
  Serious: Yes (Hospitalization)
  Sender: FDA-Public Use
  Company Number: None

PATIENT
  Age: 15 Year
  Sex: Male
  Weight: 71.55 kg

DRUGS (3)
  1. CLONIDINE. [Concomitant]
     Active Substance: CLONIDINE
  2. GUANFACINE ER [Suspect]
     Active Substance: GUANFACINE
     Indication: PETECHIAE
     Route: 048
     Dates: start: 20140123, end: 20140125
  3. RITALIN [Concomitant]
     Active Substance: METHYLPHENIDATE HYDROCHLORIDE

REACTIONS (4)
  - Petechiae [None]
  - Educational problem [None]
  - Aggression [None]
  - Hypersensitivity [None]

NARRATIVE: CASE EVENT DATE: 20140125
